FAERS Safety Report 8304808-1 (Version None)
Quarter: 2012Q2

REPORT INFORMATION
  Report Type: 
  Country: None (occurrence: None)
  Receive Date: 20120423
  Receipt Date: 20120409
  Transmission Date: 20120825
  Serious: Yes (Other)
  Sender: FDA-Public Use
  Company Number: US-RANBAXY-2012US-55555

PATIENT

DRUGS (1)
  1. CETIRIZINE [Suspect]
     Indication: HYPERSENSITIVITY
     Dosage: 10 MG, QD AT NIGHT
     Route: 065

REACTIONS (1)
  - MENORRHAGIA [None]
